FAERS Safety Report 25290602 (Version 1)
Quarter: 2025Q2

REPORT INFORMATION
  Report Type: Spontaneous
  Country: US (occurrence: US)
  Receive Date: 20250510
  Receipt Date: 20250510
  Transmission Date: 20250716
  Serious: No
  Sender: INNOGENIX, LLC
  Company Number: US-Innogenix, LLC-2176512

PATIENT

DRUGS (1)
  1. BACLOFEN [Suspect]
     Active Substance: BACLOFEN
     Indication: Muscle spasticity

REACTIONS (3)
  - Gait disturbance [Unknown]
  - Pain in extremity [Unknown]
  - Condition aggravated [Unknown]
